FAERS Safety Report 24118174 (Version 1)
Quarter: 2024Q3

REPORT INFORMATION
  Report Type: Spontaneous
  Country: US (occurrence: US)
  Receive Date: 20240722
  Receipt Date: 20240722
  Transmission Date: 20241017
  Serious: No
  Sender: PHARMING GROUP
  Company Number: US-PHARMING-PHAUS2024000600

PATIENT

DRUGS (1)
  1. JOENJA [Suspect]
     Active Substance: LENIOLISIB PHOSPHATE
     Indication: Activated PI3 kinase delta syndrome
     Dosage: 70 MILLIGRAM, BID
     Dates: start: 20240708

REACTIONS (5)
  - Arthralgia [Unknown]
  - Dizziness [Unknown]
  - Somnolence [Unknown]
  - Appetite disorder [Unknown]
  - Headache [Unknown]

NARRATIVE: CASE EVENT DATE: 20240712
